FAERS Safety Report 13895563 (Version 1)
Quarter: 2017Q3

REPORT INFORMATION
  Report Type: Spontaneous
  Country: US (occurrence: US)
  Receive Date: 20170819
  Receipt Date: 20170819
  Transmission Date: 20171127
  Serious: Yes (Other)
  Sender: FDA-Public Use
  Company Number: None

PATIENT
  Age: 48 Year
  Sex: Female
  Weight: 81.45 kg

DRUGS (8)
  1. XANAX [Concomitant]
     Active Substance: ALPRAZOLAM
  2. TYLENOL [Concomitant]
     Active Substance: ACETAMINOPHEN
  3. LAMICTAL [Concomitant]
     Active Substance: LAMOTRIGINE
  4. DILAUDID [Concomitant]
     Active Substance: HYDROMORPHONE HYDROCHLORIDE
  5. PROTONIX [Concomitant]
     Active Substance: PANTOPRAZOLE SODIUM
  6. HALOPERIDOL IV [Suspect]
     Active Substance: HALOPERIDOL
     Indication: ABDOMINAL PAIN
     Dosage: ?          QUANTITY:1 INJECTION(S);OTHER FREQUENCY:1 DOSE;?
     Route: 042
  7. AMBIEN [Concomitant]
     Active Substance: ZOLPIDEM TARTRATE
  8. OXYCONTIN [Concomitant]
     Active Substance: OXYCODONE HYDROCHLORIDE

REACTIONS (2)
  - Panic attack [None]
  - Feeling abnormal [None]

NARRATIVE: CASE EVENT DATE: 20170818
